FAERS Safety Report 6610835-2 (Version None)
Quarter: 2010Q1

REPORT INFORMATION
  Report Type: 
  Country: None (occurrence: None)
  Receive Date: 20100219
  Receipt Date: 20100210
  Transmission Date: 20100710
  Serious: Yes (Other)
  Sender: FDA-Public Use
  Company Number: 502255

PATIENT
  Age: 59 Year
  Sex: Female
  Weight: 170 kg

DRUGS (16)
  1. HEPARIN SODIUM INJECTION [Suspect]
     Indication: DRUG USE FOR UNKNOWN INDICATION
     Dosage: INTRAVENOUS
     Route: 042
  2. CEFAZOLIN [Concomitant]
  3. DILTIAZEM HCL [Concomitant]
  4. CITALOPRAM HYDROBROMIDE [Concomitant]
  5. EPREX [Concomitant]
  6. FLUCONAZOLE [Concomitant]
  7. REGULAR INSULIN [Concomitant]
  8. IRON DEXTRAN [Concomitant]
  9. LIPITOR [Concomitant]
  10. METOCLOPRAMIDE [Concomitant]
  11. (METAPROLOL) [Concomitant]
  12. PANTOPRAZOLE [Concomitant]
  13. PLAVIX [Concomitant]
  14. RANITIDINE [Concomitant]
  15. RISPERIDONE [Concomitant]
  16. (FUROSEMIDE) [Concomitant]

REACTIONS (3)
  - HAEMOGLOBIN DECREASED [None]
  - HYPOTENSION [None]
  - RETROPERITONEAL HAEMORRHAGE [None]
